FAERS Safety Report 5416510-4 (Version None)
Quarter: 2007Q3

REPORT INFORMATION
  Report Type: 
  Country: None (occurrence: None)
  Receive Date: 20070814
  Receipt Date: 20070801
  Transmission Date: 20080115
  Serious: Yes (Hospitalization, Other)
  Sender: FDA-Public Use
  Company Number: 070806-0000743

PATIENT
  Age: 5 Year

DRUGS (1)
  1. ELSPAR [Suspect]
     Indication: ACUTE LYMPHOCYTIC LEUKAEMIA
     Dosage: ; IV
     Route: 042

REACTIONS (6)
  - CARDIOVASCULAR INSUFFICIENCY [None]
  - HEPATOMEGALY [None]
  - LIVER DISORDER [None]
  - PANCREATIC PSEUDOCYST [None]
  - RESPIRATORY FAILURE [None]
  - TRANSAMINASES INCREASED [None]
